FAERS Safety Report 12698760 (Version 1)
Quarter: 2016Q3

REPORT INFORMATION
  Report Type: Spontaneous
  Country: JP (occurrence: JP)
  Receive Date: 20160830
  Receipt Date: 20160830
  Transmission Date: 20161109
  Serious: Yes (Hospitalization)
  Sender: FDA-Public Use
  Company Number: JP-SA-2016SA159685

PATIENT
  Sex: Female

DRUGS (1)
  1. MYSLEE [Suspect]
     Active Substance: ZOLPIDEM TARTRATE
     Route: 048

REACTIONS (5)
  - Somnolence [Unknown]
  - Pneumonia [Unknown]
  - Overdose [Unknown]
  - Amnesia [Unknown]
  - Abnormal behaviour [Unknown]
